FAERS Safety Report 16658999 (Version 18)
Quarter: 2022Q1

REPORT INFORMATION
  Report Type: Report from Study
  Country: GB (occurrence: GB)
  Receive Date: 20190801
  Receipt Date: 20220303
  Transmission Date: 20220423
  Serious: Yes (Death, Hospitalization, Other)
  Sender: FDA-Public Use
  Company Number: GB-CELLTRION INC.-2019GB023216

PATIENT

DRUGS (171)
  1. TRASTUZUMAB [Suspect]
     Active Substance: TRASTUZUMAB
     Indication: Breast cancer metastatic
     Dosage: 525 MILLIGRAM, Q3WK (LOADING DOSE) (DOSAGE FORM 293, 230)
     Route: 041
     Dates: start: 20160225, end: 20160225
  2. TRASTUZUMAB [Suspect]
     Active Substance: TRASTUZUMAB
     Indication: HER2 positive breast cancer
     Dosage: 400 MILLIGRAM, Q3WK (MAINTAINENCE DOSE)(PHARMACEUTICAL DOSAGE FORM 293)
     Route: 042
     Dates: start: 20160225, end: 20160617
  3. TRASTUZUMAB [Suspect]
     Active Substance: TRASTUZUMAB
     Dosage: 350 MILLIGRAM, Q3WK
     Route: 042
     Dates: start: 20160707, end: 20180822
  4. TRASTUZUMAB [Suspect]
     Active Substance: TRASTUZUMAB
     Dosage: 350 MILLIGRAM, Q3WK (PHARMACEUTICAL DOSE FORM: 230)
     Route: 042
     Dates: start: 20160707, end: 20160822
  5. TRASTUZUMAB [Suspect]
     Active Substance: TRASTUZUMAB
     Dosage: 220 MILLIGRAM, EVERY 2 WEEKS (PHARMACEUTICAL DOSE FORM: 293)
     Route: 042
     Dates: start: 20180928, end: 20190315
  6. TRASTUZUMAB [Suspect]
     Active Substance: TRASTUZUMAB
     Dosage: 220 MILLIGRAM, 3 WEEK (PHARMACEUTICAL DOSAGE FORM: 230)
     Route: 042
     Dates: start: 20180928
  7. TRASTUZUMAB [Suspect]
     Active Substance: TRASTUZUMAB
     Dosage: 400 MILLIGRAM, Q3WK (MAINTAINENCE DOSE)
     Route: 042
     Dates: start: 20160617
  8. NERATINIB [Suspect]
     Active Substance: NERATINIB
     Indication: HER2 positive breast cancer
     Dosage: 240 MILLIGRAM, QD
     Route: 048
     Dates: start: 20190403
  9. TAMOXIFEN [Suspect]
     Active Substance: TAMOXIFEN
     Indication: Breast cancer metastatic
     Dosage: 20 MILLIGRAM, ONCE A DAY
     Route: 048
     Dates: start: 20180704, end: 20180915
  10. TAMOXIFEN [Suspect]
     Active Substance: TAMOXIFEN
     Indication: HER2 positive breast cancer
     Dosage: UNK
     Route: 065
  11. TAXOTERE [Suspect]
     Active Substance: DOCETAXEL
     Indication: HER2 positive breast cancer
     Dosage: 65 MILLIGRAM, Q3WK
     Route: 042
     Dates: start: 20160226, end: 20160226
  12. TAXOTERE [Suspect]
     Active Substance: DOCETAXEL
     Indication: Breast cancer metastatic
     Dosage: 65 MG, EVERY 3 WEEKS
     Route: 042
     Dates: start: 20180226, end: 20180226
  13. TAXOTERE [Suspect]
     Active Substance: DOCETAXEL
     Dosage: UNK
     Route: 065
  14. ADO-TRASTUZUMAB EMTANSINE [Suspect]
     Active Substance: ADO-TRASTUZUMAB EMTANSINE
     Indication: Breast cancer metastatic
     Dosage: 220 MILLIGRAM, Q3WK
     Route: 042
     Dates: start: 20180928, end: 20190315
  15. ADO-TRASTUZUMAB EMTANSINE [Suspect]
     Active Substance: ADO-TRASTUZUMAB EMTANSINE
     Indication: HER2 positive breast cancer
     Dosage: DOSE FORM: 230
     Route: 065
  16. ADO-TRASTUZUMAB EMTANSINE [Suspect]
     Active Substance: ADO-TRASTUZUMAB EMTANSINE
     Dosage: UNK
  17. ADO-TRASTUZUMAB EMTANSINE [Suspect]
     Active Substance: ADO-TRASTUZUMAB EMTANSINE
     Dosage: 1980 MILLIGRAM
     Route: 042
     Dates: start: 20180928, end: 20190315
  18. FEMARA [Suspect]
     Active Substance: LETROZOLE
     Indication: HER2 positive breast cancer
     Dosage: 2.5 MG, DAILY, DISCONTINUED DUE TO DISEASE PROGRESSION AND FURTHER ANTICANCER TREATMENT
     Route: 048
     Dates: start: 20160413, end: 20180704
  19. FEMARA [Suspect]
     Active Substance: LETROZOLE
     Dosage: UNK
     Route: 065
  20. PERTUZUMAB [Suspect]
     Active Substance: PERTUZUMAB
     Indication: Breast cancer metastatic
     Dosage: 840 MILLIGRAM, Q3WK (LOADING DOSE)
     Route: 042
     Dates: start: 20160225, end: 20160225
  21. PERTUZUMAB [Suspect]
     Active Substance: PERTUZUMAB
     Indication: HER2 positive breast cancer
     Dosage: 420 MILLIGRAM, Q3WK (MAINTAINENCE DOSE)
     Route: 042
     Dates: start: 20160225, end: 20180704
  22. PERTUZUMAB [Suspect]
     Active Substance: PERTUZUMAB
     Indication: Breast cancer metastatic
     Dosage: UNK
     Route: 065
  23. PERTUZUMAB [Suspect]
     Active Substance: PERTUZUMAB
     Indication: HER2 positive breast cancer
     Dosage: UNK
  24. PERTUZUMAB [Suspect]
     Active Substance: PERTUZUMAB
     Dosage: 420 MILLIGRAM, Q3WK (MAINTAINENCE DOSE) (PHARMACEUTICAL DOSAGE FORM: 230)
     Route: 042
     Dates: start: 20160225, end: 20180704
  25. PERTUZUMAB [Suspect]
     Active Substance: PERTUZUMAB
     Dosage: 840 MG, EVERY 3 WEEKS (LOADING DOSE) (PHARMACEUTICAL DOSE FORM: 230)
     Route: 042
     Dates: start: 20160225, end: 20160225
  26. PERTUZUMAB [Suspect]
     Active Substance: PERTUZUMAB
     Dosage: 420 MILLIGRAM, 1 EVERY 3 WEEK (PHARMACEUTICAL DOSAGE FORM: 230)
     Route: 042
     Dates: start: 20160225, end: 20180703
  27. PERTUZUMAB [Suspect]
     Active Substance: PERTUZUMAB
     Dosage: 420 MILLIGRAM, 1 EVERY 3 WEEK INTERVAL (PHARMACEUTICAL DOSAGE FORM: 230)
     Route: 042
     Dates: start: 20170523
  28. DOCETAXEL [Suspect]
     Active Substance: DOCETAXEL
     Indication: Breast cancer metastatic
     Dosage: 65 MILLIGRAM, Q3WK
     Route: 042
     Dates: start: 20160226, end: 20160226
  29. DOCETAXEL [Suspect]
     Active Substance: DOCETAXEL
     Dosage: UNK
  30. LETROZOLE [Suspect]
     Active Substance: LETROZOLE
     Indication: HER2 positive breast cancer
     Dosage: 2.5 MILLIGRAM, QD
     Route: 048
     Dates: start: 20160413, end: 20180704
  31. LETROZOLE [Suspect]
     Active Substance: LETROZOLE
     Indication: Breast cancer metastatic
     Dosage: UNK
     Route: 065
  32. CINACALCET HYDROCHLORIDE [Suspect]
     Active Substance: CINACALCET HYDROCHLORIDE
     Indication: Hypercalcaemia of malignancy
     Dosage: 30 MILLIGRAM, QD (PHARMACEUTICAL DOSAGE FORM: 245)
     Route: 048
     Dates: start: 20190413, end: 201907
  33. XGEVA [Suspect]
     Active Substance: DENOSUMAB
     Indication: Product used for unknown indication
     Dosage: 120 MILLIGRAM, EVERY 3 TO 4 WEEKS, (DOSAGE FORM: 231)
     Route: 058
     Dates: start: 20180110, end: 20190426
  34. TAMOXIFEN CITRATE [Suspect]
     Active Substance: TAMOXIFEN CITRATE
     Indication: HER2 positive breast cancer
     Dosage: 20 MILLIGRAM, QD
     Route: 048
     Dates: start: 20180704, end: 20180915
  35. TAMOXIFEN CITRATE [Suspect]
     Active Substance: TAMOXIFEN CITRATE
     Indication: Breast cancer metastatic
     Dosage: UNK
  36. TAMOXIFEN CITRATE [Suspect]
     Active Substance: TAMOXIFEN CITRATE
     Dosage: 1480 MILLIGRAM
     Route: 048
  37. CANDESARTAN [Concomitant]
     Active Substance: CANDESARTAN
     Dosage: 8 MILLIGRAM, QD
     Route: 048
  38. CANDESARTAN [Concomitant]
     Active Substance: CANDESARTAN
     Dosage: UNK
  39. CANDESARTAN [Concomitant]
     Active Substance: CANDESARTAN
     Indication: Product used for unknown indication
     Dosage: 8 MILLIGRAM, ONCE A DAY (PHARMACEUTICAL DOSE FORM: 245)
     Route: 048
  40. MACROGOL COMP [Concomitant]
     Dosage: UNK, BID
     Route: 048
  41. MACROGOL COMP [Concomitant]
     Dosage: 2 UNK, QD (SACHET)
     Route: 065
  42. POLYETHYLENE GLYCOLS [Concomitant]
     Active Substance: POLYETHYLENE GLYCOLS
     Indication: Product used for unknown indication
     Dosage: 2 UNK, QD (SACHET)
     Route: 065
  43. POLYETHYLENE GLYCOLS [Concomitant]
     Active Substance: POLYETHYLENE GLYCOLS
     Dosage: UNK, EVERY 0.5 DAYS (SACHET)
     Route: 065
  44. POLYETHYLENE GLYCOLS [Concomitant]
     Active Substance: POLYETHYLENE GLYCOLS
     Dosage: 2 UNK UNK, ONCE A DAY
     Route: 065
  45. POLYETHYLENE GLYCOLS [Concomitant]
     Active Substance: POLYETHYLENE GLYCOLS
     Dosage: UNK
     Route: 048
  46. POLYETHYLENE GLYCOLS [Concomitant]
     Active Substance: POLYETHYLENE GLYCOLS
     Dosage: UNK UNK, BID
  47. POLYETHYLENE GLYCOLS [Concomitant]
     Active Substance: POLYETHYLENE GLYCOLS
     Dosage: UNK UNK, UNK
  48. POLYETHYLENE GLYCOLS [Concomitant]
     Active Substance: POLYETHYLENE GLYCOLS
     Dosage: UNK
  49. POLYETHYLENE GLYCOLS [Concomitant]
     Active Substance: POLYETHYLENE GLYCOLS
     Dosage: UNK UNK, TWO TIMES A DAY
     Route: 065
  50. POLYETHYLENE GLYCOLS [Concomitant]
     Active Substance: POLYETHYLENE GLYCOLS
     Dosage: UNK, EVERY 0.5 DAYS (SACHET)
     Route: 065
  51. LOPERAMIDE [Concomitant]
     Active Substance: LOPERAMIDE
     Indication: Prophylaxis
     Dosage: 2 MILLIGRAM, AS NECESSARY (DOSE FORM: 245)
     Route: 048
     Dates: start: 20160225
  52. LOPERAMIDE [Concomitant]
     Active Substance: LOPERAMIDE
     Dosage: 4 MG, PRN
     Route: 048
     Dates: start: 201607, end: 201703
  53. LOPERAMIDE [Concomitant]
     Active Substance: LOPERAMIDE
     Dosage: UNK, UNK
  54. LOPERAMIDE [Concomitant]
     Active Substance: LOPERAMIDE
     Dosage: UNK
  55. LOPERAMIDE [Concomitant]
     Active Substance: LOPERAMIDE
     Indication: Product used for unknown indication
     Dosage: 2 MG, AS NEEDED (PHARMACEUTICAL DOSE FORM: 245)
     Route: 048
     Dates: start: 20160225
  56. LOPERAMIDE [Concomitant]
     Active Substance: LOPERAMIDE
     Dosage: UNK UNK, UNK
  57. LOPERAMIDE [Concomitant]
     Active Substance: LOPERAMIDE
     Dosage: 4 MILLIGRAM (PHARMACEUTICAL DOSAGE FORM: 245)
     Route: 048
     Dates: start: 201607, end: 201703
  58. ZOLEDRONIC ACID [Concomitant]
     Active Substance: ZOLEDRONIC ACID
     Indication: Prophylaxis
     Dosage: 3.3 MG, MONTHLY (3.3 MILLIGRAM, QMO)
     Route: 042
     Dates: start: 20160226
  59. ZOLEDRONIC ACID [Concomitant]
     Active Substance: ZOLEDRONIC ACID
     Dosage: 3.3 MILLIGRAM, QMO
     Route: 042
     Dates: start: 20160226, end: 20170323
  60. ZOLEDRONIC ACID [Concomitant]
     Active Substance: ZOLEDRONIC ACID
     Dosage: 3.5 MILLIGRAM, EVERY 3-4WEEKS FOR 9 CYCLES THEN 3 MONTS
     Route: 042
     Dates: start: 20160414, end: 20170112
  61. ZOLEDRONIC ACID [Concomitant]
     Active Substance: ZOLEDRONIC ACID
     Dosage: 3.3 MILLIGRAM
     Route: 042
     Dates: start: 20170209, end: 20170323
  62. ZOLEDRONIC ACID [Concomitant]
     Active Substance: ZOLEDRONIC ACID
     Dosage: 3 MILLIGRAM
     Route: 042
     Dates: start: 20170628, end: 20171220
  63. ZOLEDRONIC ACID [Concomitant]
     Active Substance: ZOLEDRONIC ACID
     Dosage: 3.5 MILLIGRAM
     Route: 042
     Dates: start: 20190408, end: 20190408
  64. ZOLEDRONIC ACID [Concomitant]
     Active Substance: ZOLEDRONIC ACID
     Dosage: 3 MILLIGRAM
     Route: 042
     Dates: start: 20190510, end: 20190529
  65. RIVAROXABAN [Concomitant]
     Active Substance: RIVAROXABAN
     Indication: Pulmonary embolism
     Dosage: UNK, QD
     Route: 048
     Dates: start: 20181128
  66. RIVAROXABAN [Concomitant]
     Active Substance: RIVAROXABAN
     Indication: Product used for unknown indication
     Dosage: UNK, QD (PHARMACEUTICAL DOSE FORM: 245)
     Route: 048
     Dates: start: 20181128
  67. COCODAMOL [Concomitant]
     Active Substance: ACETAMINOPHEN\CODEINE PHOSPHATE
     Indication: Back pain
     Dosage: 2 TABLET, PRN
     Route: 048
     Dates: start: 20160707
  68. COCODAMOL [Concomitant]
     Active Substance: ACETAMINOPHEN\CODEINE PHOSPHATE
     Dosage: 1 DOSAGE FORM, AS NECESSARY
     Route: 048
  69. COCODAMOL [Concomitant]
     Active Substance: ACETAMINOPHEN\CODEINE PHOSPHATE
     Dosage: 1 DF1 DOSAGE FORM, AS NECESSARY (PHARMACEUTICAL DOSAGE FORM: 245)
     Route: 048
  70. COCODAMOL [Concomitant]
     Active Substance: ACETAMINOPHEN\CODEINE PHOSPHATE
     Dosage: 1 DF1 DOSAGE FORM, AS NECESSARY (PHARMACEUTICAL DOSAGE FORM: 245)
     Route: 048
  71. DOMPERIDONE [Concomitant]
     Active Substance: DOMPERIDONE
     Dosage: 30 MILLIGRAM, QD (10 0.33 DAY ) (DOSE FORM: 245))
     Route: 048
     Dates: start: 20160225
  72. DOMPERIDONE [Concomitant]
     Active Substance: DOMPERIDONE
     Indication: Product used for unknown indication
     Dosage: 10 MILLIGRAM, TID; 30 MILLIGRAM, QD (10 0.33 DAY ) (PHARMACEUTICAL DOSAGE FORM: 245)
     Route: 048
     Dates: start: 20160225
  73. DOMPERIDONE [Concomitant]
     Active Substance: DOMPERIDONE
     Dosage: 10 MILLIGRAM, EVERY 0.33 DAYS
     Route: 048
     Dates: start: 20160225
  74. TRAMADOL HYDROCHLORIDE [Concomitant]
     Active Substance: TRAMADOL HYDROCHLORIDE
     Indication: Product used for unknown indication
     Dosage: 50 MG, 4X/DAY (EVERY 0.25 DAY)
     Route: 048
     Dates: start: 20160217
  75. TRAMADOL HYDROCHLORIDE [Concomitant]
     Active Substance: TRAMADOL HYDROCHLORIDE
     Dosage: 200 MILLIGRAM, QD (PHARMACEUTICAL DOSAGE FORM: 245)
     Route: 048
     Dates: start: 20160217
  76. DEXAMETHASONE [Concomitant]
     Active Substance: DEXAMETHASONE
     Indication: Prophylaxis
     Dosage: 16 MILLIGRAM, QD
     Route: 048
     Dates: start: 20160225
  77. DEXAMETHASONE [Concomitant]
     Active Substance: DEXAMETHASONE
     Indication: Product used for unknown indication
     Dosage: 16 MILLIGRAM, QD (PHARMACEUTICAL DOSAGE FORM: 245)
     Route: 048
     Dates: start: 20160225
  78. DEXAMETHASONE [Concomitant]
     Active Substance: DEXAMETHASONE
     Dosage: 8MG EVERY 0.5 DAY
     Route: 048
     Dates: start: 20160225
  79. ATORVASTATIN [Concomitant]
     Active Substance: ATORVASTATIN
     Dosage: 20 MILLIGRAM, QD
     Route: 048
  80. ATORVASTATIN [Concomitant]
     Active Substance: ATORVASTATIN
     Dosage: UNK, QD
  81. ATORVASTATIN [Concomitant]
     Active Substance: ATORVASTATIN
     Indication: Product used for unknown indication
     Dosage: 20 MILLIGRAM, ONCE A DAY (PHARMACEUTICAL DOSE FORM: 245)
     Route: 048
  82. ATORVASTATIN [Concomitant]
     Active Substance: ATORVASTATIN
     Dosage: UNK
  83. CALCIUM\CHOLECALCIFEROL [Concomitant]
     Active Substance: CALCIUM\CHOLECALCIFEROL
     Indication: Product used for unknown indication
     Dosage: 2 DOSAGE FORM, QD
     Route: 048
     Dates: start: 20160323
  84. METOCLOPRAMIDE [Concomitant]
     Active Substance: METOCLOPRAMIDE
     Indication: Product used for unknown indication
     Dosage: 10 MILLIGRAM, 3 TIMES A DAY (30 MILLIGRAM, ONCE A DAY) (PHARMACEUTICAL DOSAGE FORM: 245)
     Route: 048
  85. METOCLOPRAMIDE [Concomitant]
     Active Substance: METOCLOPRAMIDE
     Dosage: UNK
  86. METOCLOPRAMIDE [Concomitant]
     Active Substance: METOCLOPRAMIDE
     Dosage: UNK
  87. METOCLOPRAMIDE [Concomitant]
     Active Substance: METOCLOPRAMIDE
     Dosage: 30 MILLIGRAM, QD (0.33 DAY) (PHARMACEUTICAL DOSAGE FORM: 245)
     Route: 048
  88. METOCLOPRAMIDE [Concomitant]
     Active Substance: METOCLOPRAMIDE
     Dosage: 10 MG EVERY 0.33 DAY
     Route: 048
  89. SITAGLIPTIN [Concomitant]
     Active Substance: SITAGLIPTIN
     Dosage: 100 MILLIGRAM, QD
     Route: 048
  90. SITAGLIPTIN [Concomitant]
     Active Substance: SITAGLIPTIN
     Dosage: UNK
  91. SITAGLIPTIN [Concomitant]
     Active Substance: SITAGLIPTIN
     Indication: Product used for unknown indication
     Dosage: 100 MILLIGRAM, QD (PHARMACEUTICAL DOSE FORM: 245)
     Route: 048
  92. SITAGLIPTIN [Concomitant]
     Active Substance: SITAGLIPTIN
     Dosage: UNK
  93. SITAGLIPTIN [Concomitant]
     Active Substance: SITAGLIPTIN
     Dosage: 100 MILLIGRAM, ONCE A DAY (PHARMACEUTICAL DOSAGE DOSAGE FORM: 245)
     Route: 048
  94. CHLORHEXIDINE GLUCONATE [Concomitant]
     Active Substance: CHLORHEXIDINE GLUCONATE
     Indication: Prophylaxis
     Dosage: 0.8 PERCENT, QD (0.2 PERCENT 0.25 DAY) (DOSE FORM: 135))
     Route: 048
     Dates: start: 20160225
  95. CHLORHEXIDINE GLUCONATE [Concomitant]
     Active Substance: CHLORHEXIDINE GLUCONATE
     Dosage: 0.2 PERCENT, QD
     Route: 048
     Dates: start: 20160225
  96. CHLORHEXIDINE GLUCONATE [Concomitant]
     Active Substance: CHLORHEXIDINE GLUCONATE
     Indication: Product used for unknown indication
     Dosage: 0.2 %, (MOUTH WASH) EVERY 0.25 DAY (PHARMACEUTICAL DOSE FORM: 135)
     Route: 048
  97. CHLORHEXIDINE GLUCONATE [Concomitant]
     Active Substance: CHLORHEXIDINE GLUCONATE
     Dosage: 0.8 %0.8 PERCENT, QD (0.2 PERCENT 0.25 DAY)
     Route: 048
     Dates: start: 20160225
  98. CHLORHEXIDINE GLUCONATE [Concomitant]
     Active Substance: CHLORHEXIDINE GLUCONATE
     Dosage: 0.2 PERCENT EVERY 0.25 DAY (MOUTHWASH)
     Route: 048
     Dates: start: 20160225
  99. DOCUSATE SODIUM [Concomitant]
     Active Substance: DOCUSATE SODIUM
     Dosage: 200 MG, EVERY 0.5DAY
     Route: 048
  100. DOCUSATE SODIUM [Concomitant]
     Active Substance: DOCUSATE SODIUM
     Dosage: 400 MILLIGRAM, QD (200 MG 0.5 DAY)
     Route: 048
  101. DOCUSATE SODIUM [Concomitant]
     Active Substance: DOCUSATE SODIUM
     Dosage: UNK, UNK
  102. DOCUSATE SODIUM [Concomitant]
     Active Substance: DOCUSATE SODIUM
     Dosage: UNK, UNK
  103. DOCUSATE SODIUM [Concomitant]
     Active Substance: DOCUSATE SODIUM
     Indication: Product used for unknown indication
     Dosage: 200 MILLIGRAM, TWO TIMES A DAY (400 MILLIGRAM, ONCE A DAY) (PHARMACEUTICAL DOSE FORM: 5)
     Route: 048
  104. DOCUSATE SODIUM [Concomitant]
     Active Substance: DOCUSATE SODIUM
     Dosage: 200 MG EVERY 0.5 DAY
     Route: 048
  105. ZOPICLONE [Concomitant]
     Active Substance: ZOPICLONE
     Dosage: 3.75 MILLIGRAM, QD
     Route: 048
     Dates: start: 20160217
  106. ZOPICLONE [Concomitant]
     Active Substance: ZOPICLONE
     Indication: Product used for unknown indication
     Dosage: 3.75 MILLIGRAM, QD(PHARMACEUTICAL DOSE FORM: 245)
     Route: 048
     Dates: start: 20160217
  107. METFORMIN [Concomitant]
     Active Substance: METFORMIN HYDROCHLORIDE
     Dosage: 2000 MILLIGRAM, QD (DOSE FORM: 245))
     Route: 048
  108. METFORMIN [Concomitant]
     Active Substance: METFORMIN HYDROCHLORIDE
     Dosage: UNK
  109. METFORMIN [Concomitant]
     Active Substance: METFORMIN HYDROCHLORIDE
     Dosage: UNK
  110. METFORMIN [Concomitant]
     Active Substance: METFORMIN HYDROCHLORIDE
     Indication: Product used for unknown indication
     Dosage: 2000 MILLIGRAM, QD (PHARMACEUTICAL DOSAGE FORM: 245)
     Route: 048
  111. METFORMIN [Concomitant]
     Active Substance: METFORMIN HYDROCHLORIDE
     Dosage: UNK UNK, UNK
  112. METFORMIN [Concomitant]
     Active Substance: METFORMIN HYDROCHLORIDE
     Dosage: UNK UNK, UNK
  113. METFORMIN [Concomitant]
     Active Substance: METFORMIN HYDROCHLORIDE
     Dosage: 2000 MILLIGRAM, ONCE A DAY (PHARMACEUTICAL DOSAGE F ORM: 245)
     Route: 048
  114. METFORMIN [Concomitant]
     Active Substance: METFORMIN HYDROCHLORIDE
     Dosage: 1000 MILLIGRAM EVERY 0.5 DAY(PHARMACEUTICAL DOSAGE FORM: 245)
     Route: 065
  115. POTASSIUM BICARBONATE;SODIUM BICARBONATE;SODIUM PHOSPHATE MONOBASIC (A [Concomitant]
     Indication: Hypophosphataemia
     Dosage: 2 TAB, BID
     Route: 048
     Dates: start: 20190611, end: 20190614
  116. POTASSIUM BICARBONATE;SODIUM BICARBONATE;SODIUM PHOSPHATE MONOBASIC (A [Concomitant]
     Dosage: 2 TABLETS EVERY 0.33 DAY
     Route: 048
     Dates: start: 20190611, end: 20190614
  117. BENZYDAMINE HYDROCHLORIDE [Concomitant]
     Active Substance: BENZYDAMINE HYDROCHLORIDE
     Indication: Glossodynia
     Dosage: UNK, UNK
  118. BENZYDAMINE HYDROCHLORIDE [Concomitant]
     Active Substance: BENZYDAMINE HYDROCHLORIDE
     Dosage: 5 MILLILITER
     Route: 061
     Dates: start: 20190606, end: 20190705
  119. BUDESONIDE [Concomitant]
     Active Substance: BUDESONIDE
     Dosage: 9 MILLIGRAM, QD
     Route: 048
     Dates: start: 20190403, end: 20190523
  120. BUDESONIDE [Concomitant]
     Active Substance: BUDESONIDE
     Indication: Product used for unknown indication
     Dosage: 9 MILLIGRAM, QD (PHARMACEUTICAL DOSE FORM: 245)
     Route: 048
     Dates: start: 20190403, end: 20190523
  121. BUDESONIDE [Concomitant]
     Active Substance: BUDESONIDE
     Dosage: 9 MILLIGRAM, ONCE A DAY (PHARMACEUTICAL DOSE FORM: 245)
     Route: 048
     Dates: start: 20190403
  122. GLICLAZIDE [Concomitant]
     Active Substance: GLICLAZIDE
     Indication: Product used for unknown indication
     Dosage: 80 MILLIGRAM, QD
     Route: 048
     Dates: start: 201809, end: 20190424
  123. GLICLAZIDE [Concomitant]
     Active Substance: GLICLAZIDE
     Dosage: 80 MILLIGRAM, QD
     Route: 048
     Dates: start: 20190425, end: 201905
  124. GLICLAZIDE [Concomitant]
     Active Substance: GLICLAZIDE
     Dosage: 40 MILLIGRAM, QD
     Route: 048
     Dates: start: 20190620, end: 20190705
  125. POTASSIUM CHLORIDE [Concomitant]
     Active Substance: POTASSIUM CHLORIDE
     Indication: Blood potassium decreased
     Dosage: UNK MMOL/L, AS NECESSARY, EVERY 3-4WEEKS FOR 9 CYCLES THEN 3 MONTHS
     Route: 042
     Dates: start: 20190611, end: 20190620
  126. POTASSIUM CHLORIDE [Concomitant]
     Active Substance: POTASSIUM CHLORIDE
     Dosage: UNK MMOL/L, AS NECESSARY, EVERY 3-4WEEKS FOR 9 CYCLES THEN 3 MONTS
     Route: 042
     Dates: start: 20190611, end: 20190620
  127. POTASSIUM CHLORIDE [Concomitant]
     Active Substance: POTASSIUM CHLORIDE
     Dosage: UNK
  128. DENOSUMAB [Concomitant]
     Active Substance: DENOSUMAB
     Indication: Product used for unknown indication
     Dosage: 120 MG,EVERY 3-4 WEEKS
     Route: 058
     Dates: start: 20180110, end: 20190426
  129. DENOSUMAB [Concomitant]
     Active Substance: DENOSUMAB
     Dosage: 120 MG
     Route: 058
     Dates: start: 20180110
  130. AMLODIPINE [Concomitant]
     Active Substance: AMLODIPINE BESYLATE
     Indication: Hypertension
     Dosage: 5 MILLIGRAM, ONCE A DAY
     Route: 048
  131. AMLODIPINE [Concomitant]
     Active Substance: AMLODIPINE BESYLATE
     Dosage: 5 MILLIGRAM, QD
     Route: 048
     Dates: start: 20180915, end: 20190529
  132. TRIMETHOPRIM [Concomitant]
     Active Substance: TRIMETHOPRIM
     Indication: Urinary tract infection
     Dosage: UNK
     Route: 048
     Dates: start: 20190412, end: 20190414
  133. TRIMETHOPRIM [Concomitant]
     Active Substance: TRIMETHOPRIM
     Indication: Urinary tract infection
     Dosage: UNK
     Route: 048
     Dates: start: 20190412, end: 20190414
  134. POTASSIUM BICARBONATE\POTASSIUM CHLORIDE [Concomitant]
     Active Substance: POTASSIUM BICARBONATE\POTASSIUM CHLORIDE
     Dosage: UNK MMOL/L, AS NECESSARY, EVERY 3-4WEEKS FOR 9 CYCLES THEN 3 MONTHS(DOSAGE FORM 59)
     Route: 048
     Dates: start: 20160322, end: 20160326
  135. POTASSIUM BICARBONATE\POTASSIUM CHLORIDE [Concomitant]
     Active Substance: POTASSIUM BICARBONATE\POTASSIUM CHLORIDE
     Indication: Product used for unknown indication
     Dosage: UNK, 2, ONCE A DAY (PHARMACEUTICAL DOSAGE FORM: 59)
     Route: 048
     Dates: start: 20160322, end: 20160326
  136. POTASSIUM BICARBONATE\POTASSIUM CHLORIDE [Concomitant]
     Active Substance: POTASSIUM BICARBONATE\POTASSIUM CHLORIDE
     Dosage: EFFERVESCENT 2 TABLETS EVERY 0.5 DAY
     Route: 048
     Dates: start: 20160322, end: 20160326
  137. INSULIN HUMAN [Concomitant]
     Active Substance: INSULIN HUMAN
     Indication: Product used for unknown indication
     Dosage: UNK
     Route: 058
     Dates: start: 20190620, end: 20190705
  138. INSULIN HUMAN [Concomitant]
     Active Substance: INSULIN HUMAN
     Dosage: UNK
     Route: 058
     Dates: start: 20190620
  139. TINZAPARIN [Concomitant]
     Active Substance: TINZAPARIN
     Indication: Product used for unknown indication
     Dosage: 11000 UNIT, QD
     Route: 058
     Dates: start: 20180915, end: 20181128
  140. MESALAMINE [Concomitant]
     Active Substance: MESALAMINE
     Indication: Gastrointestinal motility disorder
     Dosage: 800 MILLIGRAM, TID
     Route: 048
     Dates: start: 20170523, end: 2017
  141. MESALAMINE [Concomitant]
     Active Substance: MESALAMINE
     Indication: Gastrointestinal motility disorder
     Dosage: UNK
  142. MESALAMINE [Concomitant]
     Active Substance: MESALAMINE
     Indication: Gastrointestinal motility disorder
     Dosage: 800 MILLIGRAM, 3 TIMES A DAY (2400 MILLIGRAM, ONCE A DAY) (PHARMACEUTICAL DOSE FORM: 245)
     Route: 048
     Dates: start: 20170523
  143. MESALAMINE [Concomitant]
     Active Substance: MESALAMINE
     Dosage: 800 MG
     Route: 048
     Dates: start: 20170523, end: 2017
  144. PHOSPHATE SANDOZ EFFERVESCENT [Concomitant]
     Indication: Blood phosphorus decreased
     Dosage: UNK
     Route: 048
     Dates: start: 20190423, end: 20190425
  145. PHOSPHATE SANDOZ EFFERVESCENT [Concomitant]
     Indication: Hypophosphataemia
     Dosage: 2 DOSAGE FORM
     Route: 048
     Dates: start: 20190611, end: 20190614
  146. PHOSPHATE SANDOZ EFFERVESCENT [Concomitant]
     Dosage: 2 DOSAGE FORM
     Route: 048
     Dates: start: 20190618, end: 20190625
  147. SODIUM PHOSPHATE, MONOBASIC, ANHYDROUS [Concomitant]
     Active Substance: SODIUM PHOSPHATE, MONOBASIC, ANHYDROUS
     Indication: Blood phosphorus decreased
     Dosage: UNK (PHARMACEUTICAL DOSAGE FORM: 59)
     Route: 048
     Dates: start: 20190423, end: 20190425
  148. SODIUM PHOSPHATE, MONOBASIC, ANHYDROUS [Concomitant]
     Active Substance: SODIUM PHOSPHATE, MONOBASIC, ANHYDROUS
     Dosage: 2 DOSAGE FORM (PHARMACEUTICAL DOSE FORM: 245 AND 59)
     Route: 048
     Dates: start: 20190618, end: 20190625
  149. SODIUM PHOSPHATE, MONOBASIC, ANHYDROUS [Concomitant]
     Active Substance: SODIUM PHOSPHATE, MONOBASIC, ANHYDROUS
     Dosage: 2 DOSAGE FORM (PHARMACEUTICAL DOSE FORM: 245 AND 59)
     Route: 048
     Dates: start: 20190611, end: 20190614
  150. LINAGLIPTIN [Concomitant]
     Active Substance: LINAGLIPTIN
     Indication: Product used for unknown indication
     Dosage: 5 MILLIGRAM, QD
     Route: 048
     Dates: start: 201809, end: 201905
  151. CINACALCET [Concomitant]
     Active Substance: CINACALCET
     Indication: Hypercalcaemia of malignancy
     Dosage: 30 MILLIGRAM, QD
     Route: 048
     Dates: start: 20190413
  152. CINACALCET [Concomitant]
     Active Substance: CINACALCET
     Indication: Hypercalcaemia of malignancy
     Dosage: 30 MILLIGRAM, QD (PHARMACEUTICAL DOSE FORM: 245)
     Route: 048
     Dates: start: 20190413
  153. MAGNESIUM GLYCEROPHOSPHATE [Concomitant]
     Active Substance: MAGNESIUM GLYCEROPHOSPHATE
     Indication: Hypomagnesaemia
     Dosage: 4 MILLIMOLE, TID; 12 MILLIMOLE, QD
     Route: 048
     Dates: start: 20160526, end: 20160530
  154. MAGNESIUM GLYCEROPHOSPHATE [Concomitant]
     Active Substance: MAGNESIUM GLYCEROPHOSPHATE
     Dosage: UNK
  155. MAGNESIUM GLYCEROPHOSPHATE [Concomitant]
     Active Substance: MAGNESIUM GLYCEROPHOSPHATE
     Dosage: 4 MMOL EVERY 0.33 DAY
     Route: 048
     Dates: start: 20160526, end: 20160530
  156. CHLOROCRESOL [Concomitant]
     Active Substance: CHLOROCRESOL
     Indication: Rash pruritic
     Dosage: UNK
  157. CHLOROCRESOL [Concomitant]
     Active Substance: CHLOROCRESOL
     Dosage: UNK
     Route: 065
  158. CHLOROCRESOL [Concomitant]
     Active Substance: CHLOROCRESOL
     Dosage: UNK
     Route: 048
  159. POTASSIUM BICARBONATE [Concomitant]
     Active Substance: POTASSIUM BICARBONATE
     Indication: Hypophosphataemia
     Dosage: 2 TABLETS (0.33 DAY) (DOSE FORM: 245)
     Route: 048
     Dates: start: 20190611, end: 20190614
  160. POTASSIUM BICARBONATE [Concomitant]
     Active Substance: POTASSIUM BICARBONATE
     Dosage: 2 TAB, TID
     Route: 048
     Dates: start: 20190611, end: 20190614
  161. SODIUM PHOSPHATE, MONOBASIC [Concomitant]
     Active Substance: SODIUM PHOSPHATE, MONOBASIC
     Indication: Hypophosphataemia
     Dosage: 2 DF, 3X/DAY (2 TABLETS ) (DOSE FORM: 245)
     Route: 048
     Dates: start: 20190611, end: 20190614
  162. SODIUM PHOSPHATE, MONOBASIC [Concomitant]
     Active Substance: SODIUM PHOSPHATE, MONOBASIC
     Dosage: UNK
  163. SODIUM BICARBONATE [Concomitant]
     Active Substance: SODIUM BICARBONATE
     Indication: Hypophosphataemia
     Dosage: 2 TABLETS FOR 0.33/DAY (DOSE FORM: 245)
     Route: 048
     Dates: start: 20190611, end: 20190614
  164. SODIUM BICARBONATE [Concomitant]
     Active Substance: SODIUM BICARBONATE
     Dosage: 2 TABLETS FOR 0.33/DAY (PHARMACEUTICAL DOSGE FORM: 245)
     Route: 048
     Dates: start: 20190611, end: 20190614
  165. SODIUM BICARBONATE [Concomitant]
     Active Substance: SODIUM BICARBONATE
     Dosage: UNK
  166. SODIUM BICARBONATE [Concomitant]
     Active Substance: SODIUM BICARBONATE
     Dosage: UNK
  167. SODIUM CHLORIDE [Concomitant]
     Active Substance: SODIUM CHLORIDE
     Indication: Product used for unknown indication
     Dosage: UNK
  168. SODIUM CHLORIDE [Concomitant]
     Active Substance: SODIUM CHLORIDE
     Dosage: UNK
  169. SODIUM CHLORIDE [Concomitant]
     Active Substance: SODIUM CHLORIDE
     Dosage: 0.9 PERCENT
     Route: 042
     Dates: start: 20190508, end: 20190510
  170. PHOSPHATE-SANDOZ (UNITED KINGDOM) [Concomitant]
     Indication: Hypophosphataemia
     Dosage: 2 TABLETS PER 0.33 DAY
     Route: 048
     Dates: start: 20190611, end: 20190614
  171. ACTRAPID [Concomitant]
     Active Substance: INSULIN HUMAN
     Dosage: UNK
     Route: 058
     Dates: start: 20190620, end: 20190705

REACTIONS (18)
  - Disease progression [Fatal]
  - Pulmonary embolism [Fatal]
  - Weight decreased [Fatal]
  - Condition aggravated [Fatal]
  - Off label use [Fatal]
  - Acute kidney injury [Recovered/Resolved]
  - Rectal haemorrhage [Not Recovered/Not Resolved]
  - Weight decreased [Recovered/Resolved]
  - Vomiting [Recovered/Resolved]
  - Back pain [Not Recovered/Not Resolved]
  - Cholelithiasis [Not Recovered/Not Resolved]
  - Hypomagnesaemia [Recovered/Resolved]
  - Decreased appetite [Not Recovered/Not Resolved]
  - Rash pruritic [Recovered/Resolved]
  - Urinary tract infection [Recovered/Resolved]
  - Diarrhoea [Recovered/Resolved]
  - Diarrhoea [Recovered/Resolved]
  - Diarrhoea [Recovered/Resolved]

NARRATIVE: CASE EVENT DATE: 20160323
